FAERS Safety Report 9162132 (Version 1)
Quarter: 2013Q1

REPORT INFORMATION
  Report Type: Spontaneous
  Country: CA (occurrence: CA)
  Receive Date: 20130314
  Receipt Date: 20130314
  Transmission Date: 20140127
  Serious: Yes (Other)
  Sender: FDA-Public Use
  Company Number: CA-TEVA-391632USA

PATIENT
  Age: 26 Year
  Sex: Female
  Weight: 45 kg

DRUGS (1)
  1. PORTIA [Suspect]
     Route: 048

REACTIONS (3)
  - Acne cystic [Recovered/Resolved]
  - Skin hyperpigmentation [Recovered/Resolved]
  - Product substitution issue [Recovered/Resolved]
